FAERS Safety Report 20584658 (Version 1)
Quarter: 2022Q1

REPORT INFORMATION
  Report Type: Spontaneous
  Country: AU (occurrence: AU)
  Receive Date: 20220311
  Receipt Date: 20220311
  Transmission Date: 20220424
  Serious: Yes (Other)
  Sender: FDA-Public Use
  Company Number: AU-TEVA-2022-AU-2008298

PATIENT
  Age: 1 Day
  Sex: Male

DRUGS (21)
  1. FENTANYL CITRATE [Suspect]
     Active Substance: FENTANYL CITRATE
     Dosage: 5 MICROGRAM(S)/KILOGRAM
     Route: 042
  2. FENTANYL CITRATE [Suspect]
     Active Substance: FENTANYL CITRATE
     Dosage: 2 MICROGRAM(S)/KILOGRAM
     Route: 042
  3. FENTANYL CITRATE [Suspect]
     Active Substance: FENTANYL CITRATE
     Dosage: 5 MICROGRAM(S)/KILOGRAM
     Route: 042
  4. FENTANYL CITRATE [Suspect]
     Active Substance: FENTANYL CITRATE
     Dosage: 6 MICROGRAM(S)/KILOGRAM
     Route: 042
  5. FENTANYL CITRATE [Suspect]
     Active Substance: FENTANYL CITRATE
     Route: 065
  6. FENTANYL CITRATE [Suspect]
     Active Substance: FENTANYL CITRATE
     Route: 040
  7. MORPHINE HYDROCHLORIDE [Suspect]
     Active Substance: MORPHINE HYDROCHLORIDE
     Dosage: 20 MICROGRAM(S)/KILOGRAM ,
     Route: 042
  8. MORPHINE HYDROCHLORIDE [Suspect]
     Active Substance: MORPHINE HYDROCHLORIDE
     Dosage: 40 MICROGRAM(S)/KILOGRAM
     Route: 042
  9. MORPHINE HYDROCHLORIDE [Suspect]
     Active Substance: MORPHINE HYDROCHLORIDE
     Dosage: 50 MICROGRAM(S)/KILOGRAM
     Route: 065
  10. MORPHINE HYDROCHLORIDE [Suspect]
     Active Substance: MORPHINE HYDROCHLORIDE
     Dosage: 100 MICROGRAM(S)/KILOGRAM ,
     Route: 042
  11. MORPHINE HYDROCHLORIDE [Suspect]
     Active Substance: MORPHINE HYDROCHLORIDE
     Dosage: 150 MICROGRAM(S)/KILOGRAM
     Route: 042
  12. MORPHINE HYDROCHLORIDE [Suspect]
     Active Substance: MORPHINE HYDROCHLORIDE
     Dosage: 200 MICROGRAM(S)/KILOGRAM
     Route: 042
  13. MORPHINE HYDROCHLORIDE [Suspect]
     Active Substance: MORPHINE HYDROCHLORIDE
     Route: 065
  14. MORPHINE HYDROCHLORIDE [Suspect]
     Active Substance: MORPHINE HYDROCHLORIDE
     Route: 040
  15. PYRIDOXINE HYDROCHLORIDE [Concomitant]
     Active Substance: PYRIDOXINE HYDROCHLORIDE
  16. TYROSINE [Concomitant]
     Active Substance: TYROSINE
  17. NICOTINAMIDE [Concomitant]
     Active Substance: NIACINAMIDE
  18. MIDAZOLAM [Concomitant]
     Active Substance: MIDAZOLAM
     Route: 042
  19. MIDAZOLAM [Concomitant]
     Active Substance: MIDAZOLAM
     Dosage: 3 MICROGRAM(S)/KILOGRAM
  20. CLONIDINE [Concomitant]
     Active Substance: CLONIDINE
     Route: 065
  21. CLONIDINE [Concomitant]
     Active Substance: CLONIDINE
     Route: 065

REACTIONS (1)
  - Hyperaesthesia [Unknown]
